FAERS Safety Report 8385776-3 (Version None)
Quarter: 2012Q2

REPORT INFORMATION
  Report Type: 
  Country: None (occurrence: None)
  Receive Date: 20120523
  Receipt Date: 20120523
  Transmission Date: 20120825
  Serious: No
  Sender: FDA-Public Use
  Company Number: None

PATIENT
  Age: 59 Year
  Sex: Female
  Weight: 106.1417 kg

DRUGS (4)
  1. RANITIDINE [Concomitant]
  2. CIPROFLOXACIN [Suspect]
     Indication: URINARY TRACT INFECTION
     Dosage: 500MG 3X/DAY PO
     Route: 048
     Dates: start: 20120514, end: 20120515
  3. LISINOPRIL [Concomitant]
  4. PHENAZOPYRIDINE HCL TAB [Concomitant]

REACTIONS (1)
  - DEPRESSION [None]
